FAERS Safety Report 15884036 (Version 1)
Quarter: 2019Q1

REPORT INFORMATION
  Report Type: Spontaneous
  Country: US (occurrence: US)
  Receive Date: 20190129
  Receipt Date: 20190129
  Transmission Date: 20190417
  Serious: No
  Sender: FDA-Public Use
  Company Number: US-BRECKENRIDGE PHARMACEUTICAL, INC.-2061862

PATIENT
  Sex: Female

DRUGS (1)
  1. DULOXETINE. [Suspect]
     Active Substance: DULOXETINE
     Route: 048

REACTIONS (7)
  - Anxiety [Recovering/Resolving]
  - Pain [Recovering/Resolving]
  - Affect lability [Recovering/Resolving]
  - Abnormal dreams [Recovering/Resolving]
  - Mood altered [Recovering/Resolving]
  - Cerebral disorder [Recovering/Resolving]
  - Drug ineffective [Recovering/Resolving]
